FAERS Safety Report 16295112 (Version 1)
Quarter: 2019Q2

REPORT INFORMATION
  Report Type: Spontaneous
  Country: US (occurrence: US)
  Receive Date: 20190509
  Receipt Date: 20190509
  Transmission Date: 20190711
  Serious: No
  Sender: FDA-Public Use
  Company Number: US-ROCHE-2222119

PATIENT
  Age: 84 Year
  Sex: Male

DRUGS (1)
  1. ESBRIET [Suspect]
     Active Substance: PIRFENIDONE
     Indication: IDIOPATHIC PULMONARY FIBROSIS
     Dosage: 3 PILLS AFTER EACH MEAL 3 TIMES A DAY ;ONGOING: YES
     Route: 065

REACTIONS (2)
  - Hiccups [Recovered/Resolved]
  - Abdominal discomfort [Recovered/Resolved]
